FAERS Safety Report 15255287 (Version 2)
Quarter: 2019Q2

REPORT INFORMATION
  Report Type: Spontaneous
  Country: US (occurrence: US)
  Receive Date: 20180808
  Receipt Date: 20190611
  Transmission Date: 20190711
  Serious: No
  Sender: FDA-Public Use
  Company Number: US-SA-2018SA215263

PATIENT
  Age: 49 Year
  Sex: Female

DRUGS (1)
  1. DUPIXENT [Suspect]
     Active Substance: DUPILUMAB
     Indication: DERMATITIS
     Dosage: 300 MG, QOW
     Route: 058
     Dates: start: 20170730

REACTIONS (7)
  - Pain [Unknown]
  - Peripheral swelling [Unknown]
  - Skin exfoliation [Unknown]
  - Skin ulcer [Unknown]
  - Skin discolouration [Unknown]
  - Eye disorder [Unknown]
  - Scab [Unknown]

NARRATIVE: CASE EVENT DATE: 20180501
